FAERS Safety Report 5113254-3 (Version None)
Quarter: 2006Q3

REPORT INFORMATION
  Report Type: 
  Country: None (occurrence: None)
  Receive Date: 20060920
  Receipt Date: 20060907
  Transmission Date: 20061208
  Serious: Yes (Other)
  Sender: FDA-Public Use
  Company Number: 0604257US

PATIENT
  Age: 36 Year
  Sex: Female
  Weight: 74.8 kg

DRUGS (10)
  1. BOTOX [Suspect]
     Indication: IMPAIRED GASTRIC EMPTYING
     Dosage: 100 UNITS, INTRAMUSCULAR
     Route: 030
     Dates: start: 20060816, end: 20060816
  2. HUMALOG [Concomitant]
  3. COPAXONE [Concomitant]
  4. NORTRIPTYLINE HCL [Concomitant]
  5. PRILOSEC [Concomitant]
  6. TRAZODONE HCL [Concomitant]
  7. JUNEL FE (ETHINYLESTRADIOL, FERROUS FUMARATE, NORETHISTERONE ACETATE) [Concomitant]
  8. TAGAMET [Concomitant]
  9. ZOFRAN [Concomitant]
  10. REGLAN [Concomitant]

REACTIONS (18)
  - ABDOMINAL PAIN [None]
  - ANGIONEUROTIC OEDEMA [None]
  - ANOREXIA [None]
  - BLOOD GLUCOSE INCREASED [None]
  - BLOOD PRESSURE INCREASED [None]
  - DECREASED APPETITE [None]
  - DYSPHAGIA [None]
  - DYSPHONIA [None]
  - DYSPNOEA [None]
  - ERYTHEMA [None]
  - EYELID OEDEMA [None]
  - HYPERSENSITIVITY [None]
  - KIDNEY INFECTION [None]
  - NASOPHARYNGITIS [None]
  - OEDEMA PERIPHERAL [None]
  - SWELLING FACE [None]
  - THROAT TIGHTNESS [None]
  - URTICARIA [None]
